FAERS Safety Report 6434317-6 (Version None)
Quarter: 2009Q4

REPORT INFORMATION
  Report Type: 
  Country: None (occurrence: None)
  Receive Date: 20091110
  Receipt Date: 20090709
  Transmission Date: 20100525
  Serious: No
  Sender: FDA-Public Use
  Company Number: US-ASTRAZENECA-2009SE10332

PATIENT
  Sex: Female

DRUGS (3)
  1. PRILOSEC OTC [Suspect]
     Indication: OROPHARYNGEAL PAIN
     Dosage: 1 TABLET, 1 /DAY FOR 6 DAYS
     Route: 048
     Dates: start: 20090703, end: 20090709
  2. LEVOXYL [Concomitant]
     Dosage: UNKNOWN
  3. LIPITOR [Concomitant]
     Dosage: UNKNOWN

REACTIONS (2)
  - ABDOMINAL PAIN UPPER [None]
  - MUSCULOSKELETAL CHEST PAIN [None]
